FAERS Safety Report 20905714 (Version 5)
Quarter: 2025Q3

REPORT INFORMATION
  Report Type: Spontaneous
  Country: EU (occurrence: EU)
  Receive Date: 20220602
  Receipt Date: 20250807
  Transmission Date: 20251021
  Serious: Yes (Hospitalization, Other)
  Sender: MERCK SHARP & DOHME LLC
  Company Number: None

PATIENT
  Age: 71 Year
  Sex: Female

DRUGS (3)
  1. PEMBROLIZUMAB [Suspect]
     Active Substance: PEMBROLIZUMAB
     Indication: Large cell lung cancer metastatic
     Dosage: DOSE DESCRIPTION : 200 MILLIGRAM, Q3W?DAILY DOSE : 9.4 MILLIGRAM?REGIMEN DOSE : 2200  MILLIGRAM
     Route: 042
     Dates: start: 20210209, end: 20210928
  2. CISPLATIN [Suspect]
     Active Substance: CISPLATIN
     Indication: Large cell lung cancer metastatic
     Dosage: DOSE DESCRIPTION : 75 MILLIGRAM/SQ. METER, EVERY THREE WEEKS?DAILY DOSE : 3.525 MILLIGRAM/SQ. MET...
     Route: 042
     Dates: start: 20210209, end: 20210302
  3. PEMETREXED [Suspect]
     Active Substance: PEMETREXED
     Indication: Large cell lung cancer metastatic
     Dosage: DOSE DESCRIPTION : 500 MILLIGRAM/SQ. METER, EVERY THREE WEEKS?DAILY DOSE : 23.5 MILLIGRAM/SQ. MET...
     Route: 042
     Dates: start: 20210209, end: 20210928

REACTIONS (5)
  - Acute kidney injury [Recovered/Resolved]
  - Hyperthyroidism [Unknown]
  - Autoimmune hypothyroidism [Not Recovered/Not Resolved]
  - Malignant neoplasm progression [Not Recovered/Not Resolved]
  - Fatigue [Unknown]

NARRATIVE: CASE EVENT DATE: 20210101
